FAERS Safety Report 10295839 (Version 1)
Quarter: 2014Q3

REPORT INFORMATION
  Report Type: Spontaneous
  Country: US (occurrence: US)
  Receive Date: 20140711
  Receipt Date: 20140711
  Transmission Date: 20150326
  Serious: Yes (Hospitalization)
  Sender: FDA-Public Use
  Company Number: US-ACCORD-024718

PATIENT
  Age: 66 Year
  Sex: Male

DRUGS (3)
  1. CISPLATIN. [Concomitant]
     Active Substance: CISPLATIN
     Indication: SQUAMOUS CELL CARCINOMA OF LUNG
     Dosage: CISPLATIN 60 MG/M2 DAY 1
     Dates: start: 20121212, end: 20130220
  2. ROSUVASTATIN/ROSUVASTATIN CALCIUM [Concomitant]
     Active Substance: ROSUVASTATIN
     Indication: HYPERLIPIDAEMIA
  3. GEMCITABINE/GEMCITABINE HYDROCHLORIDE [Suspect]
     Active Substance: GEMCITABINE\GEMCITABINE HYDROCHLORIDE
     Indication: SQUAMOUS CELL CARCINOMA OF LUNG
     Dosage: GEMCITABINE 1000 MG/M2 ON DAY 1 AND DAY 8, REPEATED EVERY 3 WEEKS FOR 4 CYCLES.
     Dates: start: 20121212, end: 20130220

REACTIONS (7)
  - Cellulitis [Recovering/Resolving]
  - Myositis [Recovering/Resolving]
  - Dysphagia [None]
  - Odynophagia [None]
  - Pneumonia aspiration [Recovering/Resolving]
  - Glycosylated haemoglobin increased [None]
  - Recall phenomenon [Recovering/Resolving]
